FAERS Safety Report 18026165 (Version 1)
Quarter: 2020Q3

REPORT INFORMATION
  Report Type: Spontaneous
  Country: CN (occurrence: CN)
  Receive Date: 20200715
  Receipt Date: 20200715
  Transmission Date: 20201103
  Serious: Yes (Hospitalization)
  Sender: FDA-Public Use
  Company Number: CN-ASTRAZENECA-2020SE87611

PATIENT
  Age: 65 Year
  Sex: Male
  Weight: 70.5 kg

DRUGS (2)
  1. TICAGRELOR. [Suspect]
     Active Substance: TICAGRELOR
     Indication: ARTERIOSCLEROSIS
     Route: 048
     Dates: start: 20200622, end: 20200630
  2. CLOPIDOGREL [Concomitant]
     Active Substance: CLOPIDOGREL BISULFATE
     Route: 048

REACTIONS (2)
  - Dyspnoea [Unknown]
  - Chest discomfort [Recovering/Resolving]

NARRATIVE: CASE EVENT DATE: 20200630
